FAERS Safety Report 5204508-0 (Version None)
Quarter: 2007Q1

REPORT INFORMATION
  Report Type: 
  Country: None (occurrence: None)
  Receive Date: 20070110
  Receipt Date: 20060419
  Transmission Date: 20070707
  Serious: No
  Sender: FDA-Public Use
  Company Number: US-BRISTOL-MYERS SQUIBB COMPANY-13351325

PATIENT
  Age: 16 Year
  Sex: Male
  Weight: 79 kg

DRUGS (2)
  1. ABILIFY [Suspect]
     Indication: MOOD ALTERED
     Route: 048
     Dates: start: 20060401, end: 20060401
  2. ADDERALL 10 [Concomitant]
     Dosage: DURATION OF THERAPY:  YEARS

REACTIONS (10)
  - BLOOD PRESSURE INCREASED [None]
  - DYSARTHRIA [None]
  - EYELID FUNCTION DISORDER [None]
  - FEELING ABNORMAL [None]
  - FLUSHING [None]
  - HYPERHIDROSIS [None]
  - PALPITATIONS [None]
  - PARKINSONIAN GAIT [None]
  - PSYCHOMOTOR HYPERACTIVITY [None]
  - THINKING ABNORMAL [None]
